FAERS Safety Report 8297174-1 (Version None)
Quarter: 2012Q2

REPORT INFORMATION
  Report Type: 
  Country: None (occurrence: None)
  Receive Date: 20120419
  Receipt Date: 20120418
  Transmission Date: 20120825
  Serious: Yes (Other)
  Sender: FDA-Public Use
  Company Number: US-PFIZER INC-2012096614

PATIENT
  Sex: Female
  Weight: 69.388 kg

DRUGS (2)
  1. DILANTIN-125 [Suspect]
     Indication: EPILEPSY
     Dosage: 200 MG, 2X/DAY
  2. GEODON [Concomitant]
     Indication: HALLUCINATION
     Dosage: 80 MG, 2X/DAY

REACTIONS (1)
  - CONVULSION [None]
